FAERS Safety Report 8612176-0 (Version None)
Quarter: 2012Q3

REPORT INFORMATION
  Report Type: 
  Country: None (occurrence: None)
  Receive Date: 20120813
  Receipt Date: 20120813
  Transmission Date: 20120928
  Serious: Yes (Life-Threatening, Hospitalization)
  Sender: FDA-Public Use
  Company Number: None

PATIENT
  Age: 44 Year
  Sex: Female
  Weight: 60.3 kg

DRUGS (1)
  1. ASCLERA [Suspect]
     Dosage: IV - ONE TIME DOSE
     Dates: start: 20120219

REACTIONS (2)
  - DEEP VEIN THROMBOSIS [None]
  - HAEMORRHAGIC OVARIAN CYST [None]
